FAERS Safety Report 19434054 (Version 2)
Quarter: 2022Q2

REPORT INFORMATION
  Report Type: Spontaneous
  Country: GB (occurrence: GB)
  Receive Date: 20210618
  Receipt Date: 20220613
  Transmission Date: 20220721
  Serious: No
  Sender: FDA-Public Use
  Company Number: GB-AMGEN-GBRSP2021092953

PATIENT
  Age: 48 Year
  Sex: Female
  Weight: 66.8 kg

DRUGS (17)
  1. ADALIMUMAB [Suspect]
     Active Substance: ADALIMUMAB
     Indication: Psoriasis
     Dosage: 40 MILLIGRAM, Q2WK
     Route: 065
     Dates: start: 20191206
  2. FOLIC ACID [Concomitant]
     Active Substance: FOLIC ACID
     Dosage: UNK
     Dates: start: 20050316
  3. PENICILLIN G [Concomitant]
     Active Substance: PENICILLIN G
     Dosage: UNK
     Dates: start: 20050527
  4. MORPHINE SULFATE [Concomitant]
     Active Substance: MORPHINE SULFATE
     Dosage: UNK
     Dates: start: 20080310
  5. AMITRIPTYLINE [Concomitant]
     Active Substance: AMITRIPTYLINE
     Dosage: UNK
     Dates: start: 20121015
  6. METHOTREXATE [Concomitant]
     Active Substance: METHOTREXATE
     Dosage: UNK
     Dates: start: 20151104
  7. FLUOXETINE [Concomitant]
     Active Substance: FLUOXETINE HYDROCHLORIDE
     Dosage: UNK
     Dates: start: 20160922
  8. OMEPRAZOLE [Concomitant]
     Active Substance: OMEPRAZOLE
     Dosage: UNK
     Dates: start: 20161004
  9. ACETAMINOPHEN [Concomitant]
     Active Substance: ACETAMINOPHEN
     Dosage: UNK
     Dates: start: 20161004
  10. ALBUTEROL SULFATE [Concomitant]
     Active Substance: ALBUTEROL SULFATE
     Dosage: UNK
     Dates: start: 20180601
  11. QVAR [Concomitant]
     Active Substance: BECLOMETHASONE DIPROPIONATE
     Dosage: UNK
     Dates: start: 20180601, end: 20200715
  12. CHOLECALCIFEROL [Concomitant]
     Active Substance: CHOLECALCIFEROL
     Dosage: UNK
     Dates: start: 20190812
  13. ETORICOXIB [Concomitant]
     Active Substance: ETORICOXIB
     Dosage: UNK
     Dates: start: 20200107
  14. FERROUS FUMARATE [Concomitant]
     Active Substance: FERROUS FUMARATE
     Dosage: UNK
     Dates: start: 20210108
  15. AMOXICILLIN [Concomitant]
     Active Substance: AMOXICILLIN
     Dosage: UNK
     Dates: start: 20210209, end: 20210214
  16. PREDNISOLONE [Concomitant]
     Active Substance: PREDNISOLONE
     Dosage: UNK
     Dates: start: 20210209, end: 20210406
  17. TRIAMCINOLONE [Concomitant]
     Active Substance: TRIAMCINOLONE
     Dosage: UNK
     Dates: start: 20210331, end: 20210331

REACTIONS (1)
  - SARS-CoV-2 test positive [Recovered/Resolved]

NARRATIVE: CASE EVENT DATE: 20210223
